FAERS Safety Report 12805515 (Version 1)
Quarter: 2016Q4

REPORT INFORMATION
  Report Type: Spontaneous
  Country: IT (occurrence: IT)
  Receive Date: 20161004
  Receipt Date: 20161004
  Transmission Date: 20170207
  Serious: Yes (Other)
  Sender: FDA-Public Use
  Company Number: IT-AUROBINDO-AUR-APL-2016-12025

PATIENT
  Age: 64 Year

DRUGS (2)
  1. INTERFERON ALFA 2B [Suspect]
     Active Substance: INTERFERON ALFA-2B
     Indication: HEPATITIS CHRONIC ACTIVE
     Dosage: 1 DF, EVERY WEEK
     Route: 058
     Dates: start: 20130108, end: 20130820
  2. RIBAVIRIN. [Suspect]
     Active Substance: RIBAVIRIN
     Indication: HEPATITIS CHRONIC ACTIVE
     Dosage: 800 MG, DAILY
     Route: 048
     Dates: start: 20130108, end: 20130827

REACTIONS (2)
  - Stomatitis [Unknown]
  - Herpes zoster [Unknown]

NARRATIVE: CASE EVENT DATE: 20130211
